FAERS Safety Report 6786338-1 (Version None)
Quarter: 2010Q2

REPORT INFORMATION
  Report Type: 
  Country: None (occurrence: None)
  Receive Date: 20100621
  Receipt Date: 20100621
  Transmission Date: 20101027
  Serious: Yes (Disabling)
  Sender: FDA-Public Use
  Company Number: None

PATIENT
  Age: 64 Year
  Sex: Female
  Weight: 129.7 kg

DRUGS (3)
  1. MORPHINE [Suspect]
  2. MIDAZOLAM HCL [Suspect]
     Dosage: 2MG/ 2ML; 1MG/ UNKNOWN
  3. LORAZEPAM [Suspect]
     Dosage: 0.5ML IV PRN

REACTIONS (3)
  - CARDIAC FAILURE CONGESTIVE [None]
  - HYPOXIA [None]
  - RESPIRATORY FAILURE [None]
